FAERS Safety Report 5133632-6 (Version None)
Quarter: 2006Q4

REPORT INFORMATION
  Report Type: 
  Country: None (occurrence: None)
  Receive Date: 20061018
  Receipt Date: 20060906
  Transmission Date: 20070319
  Serious: Yes (Hospitalization, Other)
  Sender: FDA-Public Use
  Company Number: 2005141044

PATIENT
  Age: 72 Year
  Sex: Female

DRUGS (2)
  1. CELEBREX [Suspect]
  2. VIOXX [Suspect]

REACTIONS (3)
  - CARDIAC DISORDER [None]
  - CARDIOVASCULAR DISORDER [None]
  - CEREBROVASCULAR ACCIDENT [None]
